FAERS Safety Report 20417492 (Version 7)
Quarter: 2022Q4

REPORT INFORMATION
  Report Type: Spontaneous
  Country: CA (occurrence: CA)
  Receive Date: 20220202
  Receipt Date: 20221103
  Transmission Date: 20230113
  Serious: Yes (Hospitalization, Other)
  Sender: FDA-Public Use
  Company Number: CA-PFIZER INC-202200185469

PATIENT
  Age: 68 Year
  Sex: Female
  Weight: 64 kg

DRUGS (13)
  1. RUXIENCE [Suspect]
     Active Substance: RITUXIMAB-PVVR
     Indication: Rheumatoid arthritis
     Dosage: 1000 MG, DAY 1 AND 15
     Route: 042
     Dates: start: 20210823, end: 20210823
  2. RUXIENCE [Suspect]
     Active Substance: RITUXIMAB-PVVR
     Dosage: 1000 MG, DAY 1 AND 15
     Route: 042
     Dates: start: 20210907, end: 20210907
  3. RUXIENCE [Suspect]
     Active Substance: RITUXIMAB-PVVR
     Dosage: 1000 MG, DAY 1 AND DAY 15
     Route: 042
     Dates: start: 20220301, end: 20220301
  4. RUXIENCE [Suspect]
     Active Substance: RITUXIMAB-PVVR
     Dosage: 1000 MG, DAY 1 AND DAY 15
     Route: 042
     Dates: start: 20220322, end: 20220322
  5. RUXIENCE [Suspect]
     Active Substance: RITUXIMAB-PVVR
     Dosage: 1000 MG, ON DAY 1 AND DAY 15
     Route: 042
     Dates: start: 20220920
  6. ADVIL [Concomitant]
     Active Substance: IBUPROFEN
     Dosage: UNK
  7. CARBAMAZEPINE [Concomitant]
     Active Substance: CARBAMAZEPINE
     Dosage: UNK
  8. GABAPENTIN [Concomitant]
     Active Substance: GABAPENTIN
     Dosage: UNK
  9. LYRICA [Concomitant]
     Active Substance: PREGABALIN
     Dosage: UNK
  10. PREDNISONE [Concomitant]
     Active Substance: PREDNISONE
     Dosage: UNK
  11. PREDNISONE [Concomitant]
     Active Substance: PREDNISONE
     Dosage: 25 MG
  12. VITAMIN D NOS [Concomitant]
     Active Substance: VITAMIN D NOS
     Dosage: UNK
  13. XELJANZ [Concomitant]
     Active Substance: TOFACITINIB CITRATE
     Indication: Rheumatoid arthritis
     Dosage: 5 MG, 2X/DAY
     Route: 048

REACTIONS (9)
  - Pneumonia [Recovering/Resolving]
  - Coma [Recovering/Resolving]
  - Weight increased [Unknown]
  - Arthritis [Unknown]
  - Infusion site pain [Not Recovered/Not Resolved]
  - Infusion site erythema [Not Recovered/Not Resolved]
  - Stress [Unknown]
  - Neuralgia [Not Recovered/Not Resolved]
  - Inappropriate schedule of product administration [Unknown]

NARRATIVE: CASE EVENT DATE: 20211201
